FAERS Safety Report 13337268 (Version 2)
Quarter: 2019Q2

REPORT INFORMATION
  Report Type: Spontaneous
  Country: US (occurrence: US)
  Receive Date: 20170315
  Receipt Date: 20190409
  Transmission Date: 20190711
  Serious: No
  Sender: FDA-Public Use
  Company Number: US-PFIZER INC-2017107595

PATIENT
  Age: 51 Year
  Sex: Female

DRUGS (1)
  1. GABAPENTIN. [Suspect]
     Active Substance: GABAPENTIN
     Dosage: UNK

REACTIONS (7)
  - Balance disorder [Unknown]
  - Paraesthesia [Unknown]
  - Altered visual depth perception [Unknown]
  - Weight increased [Recovered/Resolved]
  - Coordination abnormal [Unknown]
  - Visual impairment [Unknown]
  - Drug hypersensitivity [Unknown]
